FAERS Safety Report 22288055 (Version 1)
Quarter: 2023Q2

REPORT INFORMATION
  Report Type: Report from Study
  Country: US (occurrence: US)
  Receive Date: 20230505
  Receipt Date: 20230505
  Transmission Date: 20230721
  Serious: No
  Sender: FDA-Public Use
  Company Number: US-002147023-NVSC2023US101026

PATIENT
  Sex: Female
  Weight: 70.31 kg

DRUGS (4)
  1. CLOBETASOL [Suspect]
     Active Substance: CLOBETASOL
     Indication: Psoriasis
     Dosage: UNK
     Route: 065
  2. COSENTYX [Suspect]
     Active Substance: SECUKINUMAB
     Indication: Psoriasis
     Dosage: 300 MG
     Route: 058
  3. KETOCONAZOLE [Suspect]
     Active Substance: KETOCONAZOLE
     Indication: Psoriasis
     Dosage: 2 %
     Route: 065
  4. ALCOHOL [Concomitant]
     Active Substance: ALCOHOL
     Indication: Psoriasis
     Dosage: UNK
     Route: 065

REACTIONS (9)
  - Guttate psoriasis [Unknown]
  - Arthritis [Unknown]
  - Arthropathy [Unknown]
  - Psoriasis [Unknown]
  - Erythema [Unknown]
  - Sebaceous hyperplasia [Unknown]
  - Musculoskeletal stiffness [Unknown]
  - Stress [Unknown]
  - Drug ineffective [Unknown]
